FAERS Safety Report 15532936 (Version 2)
Quarter: 2019Q1

REPORT INFORMATION
  Report Type: Spontaneous
  Country: US (occurrence: US)
  Receive Date: 20181019
  Receipt Date: 20190116
  Transmission Date: 20190417
  Serious: Yes (Hospitalization, Other)
  Sender: FDA-Public Use
  Company Number: US-DSJP-DSU-2017-122069

PATIENT

DRUGS (1)
  1. BENICAR [Suspect]
     Active Substance: OLMESARTAN MEDOXOMIL
     Indication: PRODUCT USED FOR UNKNOWN INDICATION
     Dosage: UNK

REACTIONS (6)
  - Hypotension [Unknown]
  - Sprue-like enteropathy [Not Recovered/Not Resolved]
  - Gastric ulcer [Unknown]
  - Acute kidney injury [Unknown]
  - Duodenal ulcer [Unknown]
  - Irritable bowel syndrome [Unknown]

NARRATIVE: CASE EVENT DATE: 20050503
